FAERS Safety Report 6863392-X (Version None)
Quarter: 2010Q3

REPORT INFORMATION
  Report Type: 
  Country: None (occurrence: None)
  Receive Date: 20100721
  Receipt Date: 20100715
  Transmission Date: 20110219
  Serious: Yes (Other)
  Sender: FDA-Public Use
  Company Number: JP-ABBOTT-10P-087-0658151-00

PATIENT
  Age: 83 Year
  Sex: Female

DRUGS (3)
  1. KLARICID [Suspect]
     Indication: PEMPHIGOID
     Route: 048
     Dates: start: 20100701, end: 20100713
  2. HEPARIN SODIUM [Suspect]
     Indication: PRODUCT USED FOR UNKNOWN INDICATION
     Route: 042
     Dates: start: 20100709, end: 20100709
  3. PREDNISOLONE [Concomitant]
     Indication: PRODUCT USED FOR UNKNOWN INDICATION
     Route: 048
     Dates: start: 20080602

REACTIONS (1)
  - PLATELET COUNT DECREASED [None]
